FAERS Safety Report 9643627 (Version 2)
Quarter: 2013Q4

REPORT INFORMATION
  Report Type: Spontaneous
  Country: IT (occurrence: None)
  Receive Date: 20131022
  Receipt Date: 20131104
  Transmission Date: 20140711
  Serious: Yes (Hospitalization)
  Sender: FDA-Public Use
  Company Number: 1953294

PATIENT
  Age: 63 Year
  Sex: Female

DRUGS (13)
  1. CYTARABINE [Suspect]
     Indication: ACUTE MYELOID LEUKAEMIA
     Route: 042
     Dates: start: 20120727, end: 20120802
  2. ZAVEDOS [Suspect]
     Indication: ACUTE MYELOID LEUKAEMIA
     Route: 042
     Dates: start: 20120727, end: 20120731
  3. ACICLOVIR [Concomitant]
  4. GADRAL [Concomitant]
  5. LASIX [Concomitant]
  6. ALLOPURINOLO [Concomitant]
  7. ZOFRAN [Concomitant]
  8. POSACONAZOLE [Concomitant]
  9. LEVOXACIN [Concomitant]
  10. URBASON [Concomitant]
  11. BIFRIL [Concomitant]
  12. ACE INHIBITORS [Concomitant]
  13. ACICLOVIR [Concomitant]

REACTIONS (6)
  - Pseudomonas infection [None]
  - Candida infection [None]
  - Pulmonary embolism [None]
  - Venous thrombosis [None]
  - Abdominal pain upper [None]
  - Thrombocytopenia [None]
